FAERS Safety Report 8290389-8 (Version None)
Quarter: 2012Q2

REPORT INFORMATION
  Report Type: 
  Country: None (occurrence: None)
  Receive Date: 20120413
  Receipt Date: 20120413
  Transmission Date: 20120825
  Serious: Yes (Other)
  Sender: FDA-Public Use
  Company Number: None

PATIENT
  Age: 81 Year
  Sex: Male
  Weight: 160 kg

DRUGS (1)
  1. ZOCOR [Suspect]

REACTIONS (1)
  - BLOOD GLUCOSE INCREASED [None]
